FAERS Safety Report 25722458 (Version 1)
Quarter: 2025Q3

REPORT INFORMATION
  Report Type: Spontaneous
  Country: CN (occurrence: CN)
  Receive Date: 20250825
  Receipt Date: 20250825
  Transmission Date: 20251020
  Serious: Yes (Hospitalization)
  Sender: BAYER HEALTHCARE PHARMACEUTICALS INC.
  Company Number: CN-BAYER-2025A112294

PATIENT
  Age: 69 Year
  Sex: Female
  Weight: 55 kg

DRUGS (3)
  1. KERENDIA [Suspect]
     Active Substance: FINERENONE
     Indication: Proteinuria
     Dosage: 2 DF, QD
     Route: 048
     Dates: start: 20250812, end: 20250818
  2. ATORVASTATIN CALCIUM\EZETIMIBE [Suspect]
     Active Substance: ATORVASTATIN CALCIUM\EZETIMIBE
     Indication: Lipids abnormal
     Dosage: 1 DF, QD
     Route: 048
     Dates: start: 20250811, end: 20250818
  3. CARFLOGLITAZAR SODIUM [Suspect]
     Active Substance: CARFLOGLITAZAR SODIUM
     Indication: Blood glucose abnormal
     Dosage: 32 MG, BID
     Route: 048
     Dates: start: 20250814, end: 20250818

REACTIONS (1)
  - Liver injury [Recovering/Resolving]

NARRATIVE: CASE EVENT DATE: 20250815
